FAERS Safety Report 8554774-9 (Version None)
Quarter: 2012Q3

REPORT INFORMATION
  Report Type: 
  Country: None (occurrence: None)
  Receive Date: 20120731
  Receipt Date: 20120731
  Transmission Date: 20120928
  Serious: Yes (Hospitalization)
  Sender: FDA-Public Use
  Company Number: GR-JNJFOC-20120712691

PATIENT
  Age: 27 Year
  Sex: Male

DRUGS (3)
  1. REMICADE [Suspect]
     Indication: COLITIS ULCERATIVE
     Route: 042
  2. ASACOL [Concomitant]
  3. PREDNISOLONE [Concomitant]

REACTIONS (3)
  - DERMATITIS ALLERGIC [None]
  - FLUSHING [None]
  - DYSPHORIA [None]
